FAERS Safety Report 21704543 (Version 1)
Quarter: 2022Q4

REPORT INFORMATION
  Report Type: Spontaneous
  Country: US (occurrence: US)
  Receive Date: 20221209
  Receipt Date: 20221209
  Transmission Date: 20230112
  Serious: Yes (Other)
  Sender: FDA-Public Use
  Company Number: US-drreddys-LIT/USA/22/0157912

PATIENT
  Age: 13 Year
  Sex: Female

DRUGS (4)
  1. SIROLIMUS [Suspect]
     Active Substance: SIROLIMUS
     Indication: Castleman^s disease
     Dosage: AFTER 7 MONTHS OF THERAPY
  2. RITUXIMAB [Suspect]
     Active Substance: RITUXIMAB
     Indication: Castleman^s disease
  3. METHYLPREDNISOLONE [Concomitant]
     Active Substance: METHYLPREDNISOLONE
     Indication: Castleman^s disease
  4. SILTUXIMAB [Concomitant]
     Active Substance: SILTUXIMAB
     Indication: Castleman^s disease

REACTIONS (2)
  - Proteinuria [Unknown]
  - Thrombocytopenia [Unknown]
